FAERS Safety Report 5774325-1 (Version None)
Quarter: 2008Q2

REPORT INFORMATION
  Report Type: 
  Country: None (occurrence: None)
  Receive Date: 20080616
  Receipt Date: 20080602
  Transmission Date: 20081010
  Serious: Yes (Hospitalization)
  Sender: FDA-Public Use
  Company Number: PHHY2008FR09902

PATIENT
  Sex: Male

DRUGS (11)
  1. MYFORTIC [Suspect]
     Indication: RENAL TRANSPLANT
     Dosage: UNK
     Dates: start: 20071205, end: 20080213
  2. PROGRAF [Suspect]
     Indication: RENAL TRANSPLANT
     Dosage: UNK
     Dates: start: 20080308
  3. MABTHERA [Suspect]
     Indication: KIDNEY TRANSPLANT REJECTION
     Dosage: UNK
     Dates: start: 20071221, end: 20071221
  4. MABTHERA [Suspect]
     Dosage: UNK
     Dates: start: 20071231, end: 20071231
  5. MABTHERA [Suspect]
     Dosage: UNK
     Dates: start: 20080117, end: 20080117
  6. CIPROFLOXACIN [Suspect]
     Dosage: UNK
     Dates: start: 20080420, end: 20080429
  7. FOSRENOL [Suspect]
     Dosage: UNK
     Route: 048
     Dates: start: 20080417, end: 20080429
  8. AUGMENTIN [Suspect]
     Dosage: UNK
     Dates: start: 20080415, end: 20080420
  9. OFLOXACIN [Suspect]
     Dosage: UNK
     Dates: start: 20080417, end: 20080420
  10. TAZOCILLINE [Suspect]
     Dosage: UNK
     Dates: start: 20080420, end: 20080501
  11. FILGRASTIM [Concomitant]
     Dosage: UNK
     Dates: start: 20080307, end: 20080307

REACTIONS (4)
  - AGRANULOCYTOSIS [None]
  - NEUTROPENIA [None]
  - PSEUDOMONAS INFECTION [None]
  - SEPSIS [None]
